FAERS Safety Report 15744181 (Version 2)
Quarter: 2020Q1

REPORT INFORMATION
  Report Type: Spontaneous
  Country: CA (occurrence: CA)
  Receive Date: 20181220
  Receipt Date: 20200309
  Transmission Date: 20200409
  Serious: Yes (Disabling)
  Sender: FDA-Public Use
  Company Number: CA-JNJFOC-20180210972

PATIENT
  Age: 77 Year
  Sex: Male
  Weight: 75 kg

DRUGS (2)
  1. LOPERAMIDE HYDROCHLORIDE. [Suspect]
     Active Substance: LOPERAMIDE HYDROCHLORIDE
     Indication: DIARRHOEA
     Dosage: FOR 3 MONTHS
     Route: 048
  2. IMODIUM [Suspect]
     Active Substance: LOPERAMIDE HYDROCHLORIDE
     Indication: DIARRHOEA
     Dosage: FOR 3 MONTHS
     Route: 048

REACTIONS (2)
  - Product substitution issue [Unknown]
  - Drug ineffective [Unknown]

NARRATIVE: CASE EVENT DATE: 2002
